FAERS Safety Report 9799150 (Version 2)
Quarter: 2014Q1

REPORT INFORMATION
  Report Type: Spontaneous
  Country: IN (occurrence: None)
  Receive Date: 20140102
  Receipt Date: 20140204
  Transmission Date: 20141002
  Serious: Yes (Other)
  Sender: FDA-Public Use
  Company Number: AUR-APL-2013-10554

PATIENT
  Age: 24 Year
  Sex: Male

DRUGS (2)
  1. QUETIAPINE (QUETIAPINE) [Suspect]
     Indication: BIPOLAR DISORDER
     Dosage: 50 MG, UNKNOWN
  2. VALPROATE (VALPROATE SODIUM) [Concomitant]

REACTIONS (8)
  - Mania [None]
  - Depression [None]
  - Anhedonia [None]
  - Terminal insomnia [None]
  - Initial insomnia [None]
  - Psychomotor hyperactivity [None]
  - Libido increased [None]
  - Anger [None]
